FAERS Safety Report 7802959-9 (Version None)
Quarter: 2011Q4

REPORT INFORMATION
  Report Type: 
  Country: None (occurrence: None)
  Receive Date: 20111007
  Receipt Date: 20110926
  Transmission Date: 20120403
  Serious: Yes (Hospitalization)
  Sender: FDA-Public Use
  Company Number: JP-CELGENEUS-087-CCAZA-11093780

PATIENT
  Sex: Male
  Weight: 48 kg

DRUGS (11)
  1. VFEND [Concomitant]
     Route: 065
  2. ALLEGRA [Concomitant]
     Route: 065
  3. AZACITIDINE [Suspect]
     Dosage: 75 MILLIGRAM/SQ. METER
     Route: 041
     Dates: start: 20110525, end: 20110531
  4. CARVEDILOL [Concomitant]
     Route: 065
  5. SULFAMETHOXAZOLE [Concomitant]
     Route: 065
  6. CLARITIN [Concomitant]
     Route: 065
     Dates: start: 20110618
  7. GANATON [Concomitant]
     Route: 065
  8. MAXIPIME [Concomitant]
     Route: 065
     Dates: start: 20110527, end: 20110615
  9. CIPROFLOXACIN HCL [Concomitant]
     Route: 065
     Dates: start: 20110616, end: 20110624
  10. LANSOPRAZOLE [Concomitant]
     Route: 065
  11. PRECIPITATED CALCIUM CARBONATE [Concomitant]
     Route: 065

REACTIONS (1)
  - RENAL HAEMORRHAGE [None]
